FAERS Safety Report 8738627 (Version 3)
Quarter: 2012Q4

REPORT INFORMATION
  Report Type: 
  Country: US (occurrence: US)
  Receive Date: 20120823
  Receipt Date: 20121217
  Transmission Date: 20130627
  Serious: Yes (Hospitalization)
  Sender: FDA-Public Use
  Company Number: US-ASTELLAS-2012US006987

PATIENT
  Age: 63 Year
  Sex: Male
  Weight: 86 kg

DRUGS (2)
  1. PROGRAF [Suspect]
     Indication: HEART TRANSPLANT
     Dosage: 2.5 mg, bid
     Route: 048
     Dates: start: 20100203
  2. LANTUS [Concomitant]
     Indication: DIABETES MELLITUS
     Dosage: UNK
     Route: 065

REACTIONS (5)
  - Food poisoning [Recovered/Resolved]
  - Drug dose omission [Unknown]
  - Blood glucose abnormal [Unknown]
  - Immunosuppressant drug level decreased [Unknown]
  - Weight increased [Unknown]
